FAERS Safety Report 5024871-3 (Version None)
Quarter: 2006Q2

REPORT INFORMATION
  Report Type: 
  Country: None (occurrence: None)
  Receive Date: 20060613
  Receipt Date: 20060602
  Transmission Date: 20061013
  Serious: Yes (Death)
  Sender: FDA-Public Use
  Company Number: US-SANOFI-SYNTHELABO-A03200603610

PATIENT
  Sex: Female
  Weight: 83.9 kg

DRUGS (13)
  1. AMIODARONE [Concomitant]
     Route: 048
  2. COREG [Concomitant]
     Route: 048
  3. NEURONTIN [Concomitant]
     Route: 048
  4. HYDROCHLOROTHIAZIDE [Concomitant]
     Route: 048
  5. AMBIEN [Concomitant]
     Route: 048
  6. LANTUS [Concomitant]
     Dosage: ^16/16 UNITS DAILY^
     Route: 058
  7. NORVASC [Concomitant]
     Route: 048
  8. TOPROL-XL [Concomitant]
     Route: 048
  9. LISINOPRIL [Concomitant]
     Route: 048
  10. LASIX [Concomitant]
     Route: 048
  11. ASPIRIN [Concomitant]
     Route: 048
  12. PRAVACHOL [Suspect]
     Indication: BLOOD CHOLESTEROL INCREASED
     Route: 048
     Dates: start: 20050922
  13. PLAVIX [Suspect]
     Indication: STENT PLACEMENT
     Route: 048
     Dates: start: 20050922

REACTIONS (2)
  - COMA [None]
  - DEATH [None]
